FAERS Safety Report 7077130-1 (Version None)
Quarter: 2010Q4

REPORT INFORMATION
  Report Type: 
  Country: None (occurrence: None)
  Receive Date: 20101101
  Receipt Date: 20101027
  Transmission Date: 20110411
  Serious: Yes (Hospitalization)
  Sender: FDA-Public Use
  Company Number: A0797200A

PATIENT
  Sex: Female
  Weight: 115.9 kg

DRUGS (14)
  1. AVANDIA [Suspect]
     Dosage: 4MG PER DAY
     Route: 048
     Dates: end: 20070101
  2. VICODIN [Concomitant]
  3. FENTANYL CITRATE [Concomitant]
  4. INSULIN [Concomitant]
  5. PROTONIX [Concomitant]
  6. LESCOL [Concomitant]
  7. LUNESTA [Concomitant]
  8. COREG [Concomitant]
  9. DIOVAN [Concomitant]
  10. LAMICTAL [Concomitant]
  11. ALBUTEROL [Concomitant]
  12. ATROVENT [Concomitant]
  13. AZMACORT [Concomitant]
  14. WELLBUTRIN [Concomitant]

REACTIONS (7)
  - CARDIAC DISORDER [None]
  - CARDIAC FAILURE CONGESTIVE [None]
  - CARDIOMYOPATHY [None]
  - CHRONIC OBSTRUCTIVE PULMONARY DISEASE [None]
  - DEPRESSION [None]
  - NEUROPATHY PERIPHERAL [None]
  - PAIN [None]
